FAERS Safety Report 7072473-X (Version None)
Quarter: 2010Q4

REPORT INFORMATION
  Report Type: 
  Country: None (occurrence: None)
  Receive Date: 20101029
  Receipt Date: 20100202
  Transmission Date: 20110411
  Serious: No
  Sender: FDA-Public Use
  Company Number: A0842598A

PATIENT
  Age: 67 Year
  Sex: Female

DRUGS (8)
  1. ADVAIR DISKUS 100/50 [Suspect]
     Indication: CHRONIC OBSTRUCTIVE PULMONARY DISEASE
     Route: 055
  2. PROZAC [Concomitant]
  3. COREG [Concomitant]
  4. DIGOXIN [Concomitant]
  5. TOPAMAX [Concomitant]
  6. LIPITOR [Concomitant]
  7. LYRICA [Concomitant]
  8. ASPIRIN [Concomitant]

REACTIONS (3)
  - CHEST DISCOMFORT [None]
  - DRUG INEFFECTIVE [None]
  - DYSPNOEA [None]
